FAERS Safety Report 20922407 (Version 1)
Quarter: 2022Q2

REPORT INFORMATION
  Report Type: Spontaneous
  Country: GB (occurrence: GB)
  Receive Date: 20220607
  Receipt Date: 20220607
  Transmission Date: 20220721
  Serious: Yes (Other)
  Sender: FDA-Public Use
  Company Number: GB-MHRA-MED-202205300915008750-VSDJH

PATIENT
  Sex: Male

DRUGS (5)
  1. LEDIPASVIR\SOFOSBUVIR [Suspect]
     Active Substance: LEDIPASVIR\SOFOSBUVIR
     Indication: Hepatitis C RNA positive
     Dosage: 1 DOSAGE FORM, QD
     Route: 065
  2. BUPRENORPHINE [Concomitant]
     Active Substance: BUPRENORPHINE
  3. LEVOTHYROXINE [Concomitant]
     Active Substance: LEVOTHYROXINE
  4. MIRTAZAPINE [Concomitant]
     Active Substance: MIRTAZAPINE
  5. QUETIAPINE [Concomitant]
     Active Substance: QUETIAPINE

REACTIONS (1)
  - Psychotic disorder [Recovering/Resolving]
